FAERS Safety Report 16373852 (Version 1)
Quarter: 2019Q2

REPORT INFORMATION
  Report Type: Spontaneous
  Country: UA (occurrence: UA)
  Receive Date: 20190530
  Receipt Date: 20190530
  Transmission Date: 20190711
  Serious: Yes (Hospitalization)
  Sender: FDA-Public Use
  Company Number: UA-SA-2019SA141001

PATIENT
  Age: 21 Year
  Sex: Female

DRUGS (4)
  1. TOUJEO [Suspect]
     Active Substance: INSULIN GLARGINE
     Indication: TYPE 1 DIABETES MELLITUS
     Dosage: 10 IU, QD IN EVENING
     Route: 058
  2. NOVORAPID [Concomitant]
     Active Substance: INSULIN ASPART
     Indication: TYPE 1 DIABETES MELLITUS
     Dosage: 8 IU, TID
     Route: 065
  3. FOLIC ACID. [Concomitant]
     Active Substance: FOLIC ACID
     Indication: PREGNANCY
     Dosage: 0.5 MG, QD TILL 14 GESTATION WEEK
     Route: 065
  4. VITAMIN E [Concomitant]
     Active Substance: .ALPHA.-TOCOPHEROL
     Indication: PREGNANCY
     Dosage: 200 MG, QD TILL 14 GESTATION WEEK
     Route: 065

REACTIONS (7)
  - Exposure during pregnancy [Unknown]
  - Cardiovascular insufficiency [Recovering/Resolving]
  - Diabetic retinopathy [Recovering/Resolving]
  - Myopia [Recovering/Resolving]
  - Metabolic cardiomyopathy [Recovering/Resolving]
  - Polyneuropathy [Recovering/Resolving]
  - Diabetic neuropathy [Recovering/Resolving]

NARRATIVE: CASE EVENT DATE: 20190329
